FAERS Safety Report 4606925-6 (Version None)
Quarter: 2005Q1

REPORT INFORMATION
  Report Type: 
  Country: None (occurrence: None)
  Receive Date: 20050310
  Receipt Date: 20050307
  Transmission Date: 20050727
  Serious: Yes (Hospitalization, Other)
  Sender: FDA-Public Use
  Company Number: KII-2005-0015401

PATIENT
  Age: 31 Year
  Sex: Female

DRUGS (8)
  1. OXYCODONE HCL [Suspect]
     Dosage: ORAL
     Route: 048
  2. TRAMADOL HCL [Suspect]
     Dosage: ORAL
     Route: 048
  3. BENZODIAZEPINES DERIVATIVES () [Concomitant]
     Dosage: ORAL
     Route: 048
  4. IBUPROFEN [Suspect]
     Dosage: ORAL
     Route: 048
  5. ANTIHISTAMINES FOR SYSTEMIC USE () [Suspect]
     Dosage: ORAL
     Route: 048
  6. ANTIEPILEPTICS () [Suspect]
     Dosage: ORAL
     Route: 048
  7. TRAZODONE HCL [Suspect]
     Dosage: ORAL
     Route: 048
  8. TRICYCLIC ANTIDEPRESSANTS () [Suspect]

REACTIONS (5)
  - ABNORMAL BEHAVIOUR [None]
  - LETHARGY [None]
  - MULTIPLE DRUG OVERDOSE [None]
  - POLYSUBSTANCE ABUSE [None]
  - SOMNOLENCE [None]
